FAERS Safety Report 24836511 (Version 1)
Quarter: 2025Q1

REPORT INFORMATION
  Report Type: Spontaneous
  Country: US (occurrence: US)
  Receive Date: 20250113
  Receipt Date: 20250113
  Transmission Date: 20250409
  Serious: Yes (Hospitalization)
  Sender: JOHNSON AND JOHNSON
  Company Number: US-JNJFOC-20241164294

PATIENT
  Sex: Female

DRUGS (1)
  1. TALVEY [Suspect]
     Active Substance: TALQUETAMAB-TGVS
     Indication: Product used for unknown indication
     Route: 065

REACTIONS (6)
  - Pneumonia [Unknown]
  - Thrombocytopenia [Unknown]
  - Liver function test increased [Unknown]
  - Fasciitis [Unknown]
  - Myositis [Unknown]
  - Mental status changes [Unknown]
